FAERS Safety Report 7849693 (Version 3)
Quarter: 2021Q3

REPORT INFORMATION
  Report Type: Spontaneous
  Country: CN (occurrence: CN)
  Receive Date: 20110310
  Receipt Date: 20210701
  Transmission Date: 20211014
  Serious: Yes (Hospitalization, Other)
  Sender: FDA-Public Use
  Company Number: PHHY2011CN17386

PATIENT
  Age: 18 Year
  Sex: Female
  Weight: 46 kg

DRUGS (11)
  1. CITICOLINE [Concomitant]
     Active Substance: CITICOLINE
     Indication: PRODUCT USED FOR UNKNOWN INDICATION
     Dosage: UNK
     Route: 065
  2. TAZOBACTAM [Concomitant]
     Active Substance: TAZOBACTAM
     Indication: PRODUCT USED FOR UNKNOWN INDICATION
     Route: 065
  3. VORICONAZOLE. [Interacting]
     Active Substance: VORICONAZOLE
     Dosage: 200 MG, EVERY 12 HOURLY
     Route: 048
  4. CEFACLOR. [Concomitant]
     Active Substance: CEFACLOR
     Indication: PRODUCT USED FOR UNKNOWN INDICATION
     Route: 065
  5. ROTUNDINE [Concomitant]
     Indication: PRODUCT USED FOR UNKNOWN INDICATION
     Route: 065
  6. CICLOSPORIN [Suspect]
     Active Substance: CYCLOSPORINE
     Indication: GRAFT VERSUS HOST DISEASE
     Dosage: 100 MG, Q12H
     Route: 048
  7. MYCOPHENOLATE MOFETIL. [Concomitant]
     Active Substance: MYCOPHENOLATE MOFETIL
     Indication: GRAFT VERSUS HOST DISEASE
     Dosage: 8 MG, ONCE EVERY 12 HOURS
     Route: 065
  8. CICLOSPORIN [Interacting]
     Active Substance: CYCLOSPORINE
     Dosage: 75 MG, Q12H
     Route: 048
  9. MYCOPHENOLATE MOFETIL. [Concomitant]
     Active Substance: MYCOPHENOLATE MOFETIL
     Dosage: 1 G, Q12H
     Route: 048
  10. METHYLPREDNISOLONE. [Concomitant]
     Active Substance: METHYLPREDNISOLONE
     Indication: GRAFT VERSUS HOST DISEASE
     Dosage: 8 MG, Q12H
     Route: 048
  11. VORICONAZOLE. [Interacting]
     Active Substance: VORICONAZOLE
     Indication: ANTIFUNGAL PROPHYLAXIS
     Dosage: 400 MG, Q12H
     Route: 048

REACTIONS (30)
  - Cerebral infarction [Recovered/Resolved]
  - Fungal infection [Recovered/Resolved]
  - Blood uric acid increased [Unknown]
  - Leukoencephalopathy [Unknown]
  - Headache [Recovered/Resolved]
  - Trismus [Recovered/Resolved]
  - Productive cough [Recovered/Resolved]
  - Immunosuppressant drug level increased [Recovered/Resolved]
  - Myoglobin blood increased [Unknown]
  - Blood urea increased [Unknown]
  - Alpha hydroxybutyrate dehydrogenase increased [Unknown]
  - Blood triglycerides increased [Unknown]
  - Inflammation [Unknown]
  - White blood cell count increased [Unknown]
  - Occult blood [Recovered/Resolved]
  - Hyperlipidaemia [Unknown]
  - Pneumonia [Recovered/Resolved]
  - Red blood cell sedimentation rate increased [Unknown]
  - Epilepsy [Unknown]
  - C-reactive protein increased [Unknown]
  - Blood lactate dehydrogenase increased [Unknown]
  - Low density lipoprotein increased [Unknown]
  - Dizziness [Recovered/Resolved]
  - Granulocyte count increased [Unknown]
  - Seizure [Unknown]
  - Vision blurred [Recovered/Resolved]
  - CSF test abnormal [Recovered/Resolved]
  - Lipoprotein (a) increased [Unknown]
  - Blood cholesterol increased [Unknown]
  - Drug interaction [Recovered/Resolved]
